FAERS Safety Report 7564872-4 (Version None)
Quarter: 2011Q2

REPORT INFORMATION
  Report Type: 
  Country: None (occurrence: None)
  Receive Date: 20110622
  Receipt Date: 20110120
  Transmission Date: 20111010
  Serious: Yes (Death)
  Sender: FDA-Public Use
  Company Number: US-MYLANLABS-2011S1001496

PATIENT
  Age: 46 Year
  Sex: Female

DRUGS (2)
  1. CLOZAPINE [Suspect]
     Route: 048
     Dates: start: 20040101, end: 20110101
  2. CLOZAPINE [Suspect]
     Route: 048
     Dates: start: 20040101, end: 20110101

REACTIONS (2)
  - THROMBOSIS [None]
  - HIP FRACTURE [None]
